FAERS Safety Report 10403251 (Version 3)
Quarter: 2014Q3

REPORT INFORMATION
  Report Type: Spontaneous
  Country: FR (occurrence: FR)
  Receive Date: 20140822
  Receipt Date: 20140903
  Transmission Date: 20150326
  Serious: Yes (Hospitalization)
  Sender: FDA-Public Use
  Company Number: FR-PFIZER INC-2014232451

PATIENT
  Age: 87 Year
  Sex: Male
  Weight: 53 kg

DRUGS (8)
  1. NORSET [Suspect]
     Active Substance: MIRTAZAPINE
     Dosage: 15 MG, 1X/DAY
     Route: 048
     Dates: start: 20140108, end: 20140204
  2. TIAPRIDAL [Suspect]
     Active Substance: TIAPRIDE HYDROCHLORIDE
     Dosage: 5 GTT, AS NEEDED
     Route: 048
     Dates: start: 20140110, end: 20140204
  3. CARDENSIEL [Concomitant]
     Active Substance: BISOPROLOL FUMARATE
     Dosage: 1.25 MG, DAILY
     Route: 048
     Dates: start: 20140101
  4. FORLAX [Concomitant]
     Active Substance: POLYETHYLENE GLYCOL 4000
     Dosage: 2 DF, 1X/DAY
     Route: 048
     Dates: start: 201401
  5. LEVOTHYROX [Concomitant]
     Active Substance: LEVOTHYROXINE
     Dosage: 50 UG, 1X/DAY
     Route: 048
  6. DOLIPRANE [Concomitant]
     Active Substance: ACETAMINOPHEN
     Dosage: 500 MG, 1X/DAY
     Route: 048
     Dates: start: 20140103
  7. XANAX [Suspect]
     Active Substance: ALPRAZOLAM
     Dosage: 0.125 MG, 3X/DAY
     Route: 048
     Dates: start: 20140124, end: 20140204
  8. XATRAL [Concomitant]
     Active Substance: ALFUZOSIN
     Dosage: 10 MG, 1X/DAY
     Route: 048
     Dates: start: 20140103

REACTIONS (5)
  - Confusional state [Unknown]
  - Tremor [Recovered/Resolved]
  - Dehydration [Unknown]
  - Constipation [Unknown]
  - Somnolence [Unknown]

NARRATIVE: CASE EVENT DATE: 20140204
